FAERS Safety Report 7221147-0 (Version None)
Quarter: 2011Q1

REPORT INFORMATION
  Report Type: 
  Country: None (occurrence: None)
  Receive Date: 20110112
  Receipt Date: 20110103
  Transmission Date: 20110831
  Serious: Yes (Hospitalization)
  Sender: FDA-Public Use
  Company Number: US-JNJFOC-20110100422

PATIENT
  Sex: Male
  Weight: 52 kg

DRUGS (3)
  1. REMICADE [Suspect]
     Indication: CROHN'S DISEASE
     Route: 042
  2. REMICADE [Suspect]
     Route: 042
  3. METHOTREXATE [Concomitant]

REACTIONS (5)
  - CLOSTRIDIUM TEST POSITIVE [None]
  - VOMITING [None]
  - NAUSEA [None]
  - ABDOMINAL PAIN [None]
  - DIARRHOEA [None]
